FAERS Safety Report 6923460-0 (Version None)
Quarter: 2010Q3

REPORT INFORMATION
  Report Type: 
  Country: None (occurrence: None)
  Receive Date: 20100813
  Receipt Date: 20100802
  Transmission Date: 20110219
  Serious: Yes (Hospitalization)
  Sender: FDA-Public Use
  Company Number: US-ELI_LILLY_AND_COMPANY-US201005006211

PATIENT
  Sex: Male

DRUGS (11)
  1. FORTEO [Suspect]
     Indication: OSTEOPOROSIS
     Dosage: 20 UG, DAILY (1/D)
     Dates: start: 20090601
  2. POLY-IRON [Concomitant]
     Dosage: 150 MG, 2/D
  3. ASPIRIN [Concomitant]
  4. SIMVASTATIN [Concomitant]
  5. METOPROLOL TARTRATE [Concomitant]
  6. CITALOPRAM [Concomitant]
  7. TAMSULOSIN HCL [Concomitant]
  8. RAMIPRIL [Concomitant]
  9. ARICEPT [Concomitant]
  10. VITAMIN D [Concomitant]
     Dosage: 50000 U, WEEKLY (1/W)
  11. VITAMINS [Concomitant]

REACTIONS (2)
  - MEMORY IMPAIRMENT [None]
  - OSTEOARTHRITIS [None]
